FAERS Safety Report 24042000 (Version 2)
Quarter: 2024Q3

REPORT INFORMATION
  Report Type: Spontaneous
  Country: HR (occurrence: HR)
  Receive Date: 20240702
  Receipt Date: 20240715
  Transmission Date: 20241017
  Serious: Yes (Hospitalization)
  Sender: GUERBET
  Company Number: HR-GUERBET / CROATIA-HR-20240004

PATIENT
  Age: 48 Year
  Sex: Male
  Weight: 95 kg

DRUGS (3)
  1. OPTIRAY 350 [Suspect]
     Active Substance: IOVERSOL
     Indication: Computerised tomogram heart
     Route: 042
     Dates: start: 20240618, end: 20240618
  2. NORMABEL [Concomitant]
     Active Substance: DIAZEPAM
     Indication: Premedication
     Route: 048
     Dates: start: 20240618, end: 20240618
  3. ATENOLOL [Concomitant]
     Active Substance: ATENOLOL
     Indication: Premedication
     Route: 048
     Dates: start: 20240618, end: 20240618

REACTIONS (6)
  - Erythema [Recovered/Resolved]
  - Swelling of eyelid [Recovered/Resolved]
  - Vomiting [Recovered/Resolved]
  - Burning sensation [Recovered/Resolved]
  - Urticaria [Recovered/Resolved]
  - Nausea [Recovered/Resolved]

NARRATIVE: CASE EVENT DATE: 20240618
